FAERS Safety Report 25066622 (Version 2)
Quarter: 2025Q2

REPORT INFORMATION
  Report Type: Spontaneous
  Country: CA (occurrence: CA)
  Receive Date: 20250312
  Receipt Date: 20250623
  Transmission Date: 20250716
  Serious: Yes (Other)
  Sender: ROCHE
  Company Number: CA-002147023-NVSC2025CA037165

PATIENT
  Age: 59 Year
  Sex: Female

DRUGS (6)
  1. OMALIZUMAB [Suspect]
     Active Substance: OMALIZUMAB
     Indication: Asthma
     Dosage: 300 MG, Q2W
     Route: 065
  2. OMALIZUMAB [Suspect]
     Active Substance: OMALIZUMAB
     Dosage: 300 MG, Q2W
     Route: 065
  3. OMALIZUMAB [Suspect]
     Active Substance: OMALIZUMAB
     Dosage: 300 MG, Q2W
     Route: 065
  4. ARNUITY ELLIPTA [Concomitant]
     Active Substance: FLUTICASONE FUROATE
     Indication: Asthma
     Dosage: 1 DOSAGE FORM, QD
     Route: 065
  5. DESOXIMETASONE [Concomitant]
     Active Substance: DESOXIMETASONE
     Indication: Asthma
     Route: 065
  6. ALBUTEROL [Concomitant]
     Active Substance: ALBUTEROL
     Indication: Product used for unknown indication
     Dosage: 4 DOSAGE FORM, QD
     Route: 065

REACTIONS (21)
  - Blister [Not Recovered/Not Resolved]
  - Blood pressure decreased [Not Recovered/Not Resolved]
  - Bone pain [Not Recovered/Not Resolved]
  - Chills [Not Recovered/Not Resolved]
  - Diabetes mellitus [Not Recovered/Not Resolved]
  - Diarrhoea [Not Recovered/Not Resolved]
  - Dizziness [Not Recovered/Not Resolved]
  - Dyspepsia [Not Recovered/Not Resolved]
  - Fall [Unknown]
  - Feeding disorder [Not Recovered/Not Resolved]
  - Headache [Not Recovered/Not Resolved]
  - Hyperhidrosis [Not Recovered/Not Resolved]
  - Injection site mass [Not Recovered/Not Resolved]
  - Injection site movement impairment [Not Recovered/Not Resolved]
  - Injection site pain [Not Recovered/Not Resolved]
  - Malaise [Not Recovered/Not Resolved]
  - Myalgia [Not Recovered/Not Resolved]
  - Osteoporosis [Not Recovered/Not Resolved]
  - Pyrexia [Not Recovered/Not Resolved]
  - Skin reaction [Not Recovered/Not Resolved]
  - Vomiting [Not Recovered/Not Resolved]
